FAERS Safety Report 4854598-X (Version None)
Quarter: 2005Q4

REPORT INFORMATION
  Report Type: 
  Country: None (occurrence: None)
  Receive Date: 20051213
  Receipt Date: 20051201
  Transmission Date: 20060501
  Serious: Yes (Hospitalization)
  Sender: FDA-Public Use
  Company Number: ITWYE197801DEC05

PATIENT
  Age: 73 Year
  Sex: Male

DRUGS (1)
  1. RAPAMUNE [Suspect]
     Indication: PROPHYLAXIS AGAINST TRANSPLANT REJECTION
     Route: 048
     Dates: start: 20050811

REACTIONS (5)
  - ABDOMINAL PAIN UPPER [None]
  - COUGH [None]
  - KLEBSIELLA INFECTION [None]
  - PYREXIA [None]
  - SPUTUM CULTURE POSITIVE [None]
